FAERS Safety Report 8589657 (Version 3)
Quarter: 2013Q1

REPORT INFORMATION
  Report Type: Spontaneous
  Country: FR (occurrence: FR)
  Receive Date: 20120601
  Receipt Date: 20130117
  Transmission Date: 20140127
  Serious: Yes (Hospitalization)
  Sender: FDA-Public Use
  Company Number: FR-B.I. PHARMACEUTICALS,INC./RIDGEFIELD-2012-FF-00606FF

PATIENT
  Age: 89 Year
  Sex: Female
  Weight: 55.1 kg

DRUGS (2)
  1. PRADAXA [Suspect]
     Indication: ATRIAL FIBRILLATION
     Dosage: 220 MG
     Route: 048
     Dates: start: 201202, end: 20120414
  2. CORDARONE [Suspect]
     Indication: ATRIAL FLUTTER
     Dosage: ONCE DAILY 5DAYS A WEEK
     Route: 048

REACTIONS (4)
  - Renal failure [Recovered/Resolved]
  - Rectal haemorrhage [Recovered/Resolved]
  - Melaena [Unknown]
  - Haemorrhagic anaemia [Recovered/Resolved]
